FAERS Safety Report 7611499-1 (Version None)
Quarter: 2011Q3

REPORT INFORMATION
  Report Type: 
  Country: None (occurrence: None)
  Receive Date: 20110715
  Receipt Date: 20110630
  Transmission Date: 20111222
  Serious: Yes (Life-Threatening)
  Sender: FDA-Public Use
  Company Number: BR-SANOFI-AVENTIS-2011SA044886

PATIENT
  Age: 18 Year
  Sex: Male

DRUGS (3)
  1. OFORTA [Suspect]
     Indication: BONE MARROW CONDITIONING REGIMEN
     Route: 065
     Dates: start: 20110613, end: 20110614
  2. MELPHALAN HYDROCHLORIDE [Concomitant]
     Dates: start: 20110614
  3. ANTI-THYMOCYTE GLOBULIN NOS [Suspect]
     Indication: BONE MARROW CONDITIONING REGIMEN
     Route: 042
     Dates: start: 20110614, end: 20110614

REACTIONS (3)
  - ANAPHYLACTIC SHOCK [None]
  - PYREXIA [None]
  - TREMOR [None]
